FAERS Safety Report 7318862-7 (Version None)
Quarter: 2011Q1

REPORT INFORMATION
  Report Type: 
  Country: None (occurrence: None)
  Receive Date: 20110228
  Receipt Date: 20110110
  Transmission Date: 20110831
  Serious: No
  Sender: FDA-Public Use
  Company Number: A0891878A

PATIENT
  Age: 56 Year
  Sex: Female

DRUGS (2)
  1. IMITREX [Suspect]
     Dosage: 6MG AS DIRECTED
     Route: 058
     Dates: start: 20100831, end: 20100924
  2. IMITREX [Suspect]
     Dosage: 6MG AS DIRECTED
     Route: 058
     Dates: start: 20100831, end: 20100924

REACTIONS (2)
  - PRODUCT QUALITY ISSUE [None]
  - DEVICE MALFUNCTION [None]
